FAERS Safety Report 20328456 (Version 3)
Quarter: 2022Q2

REPORT INFORMATION
  Report Type: Spontaneous
  Country: US (occurrence: US)
  Receive Date: 20220112
  Receipt Date: 20220516
  Transmission Date: 20220721
  Serious: No
  Sender: FDA-Public Use
  Company Number: US-PFIZER INC-2020054719

PATIENT
  Age: 13 Year
  Sex: Female
  Weight: 39.9 kg

DRUGS (5)
  1. GENOTROPIN [Suspect]
     Active Substance: SOMATROPIN
     Indication: Growth hormone deficiency
     Dosage: 1.6 MG, DAILY
  2. GENOTROPIN [Suspect]
     Active Substance: SOMATROPIN
     Dosage: 2.2 MG, DAILY
  3. GENOTROPIN [Suspect]
     Active Substance: SOMATROPIN
     Dosage: 2.2 MG (INJECT 2.2MG SQ 6X/WK. THIS EQUALS 0.33MG/KG/WK)
     Route: 058
  4. GENOTROPIN [Suspect]
     Active Substance: SOMATROPIN
     Dosage: 2.4 MG (INJECT 2.4 MG SQ 6X/WK. THIS EQUALS 0.35 MG/KG/WK)
     Route: 058
  5. GENOTROPIN [Suspect]
     Active Substance: SOMATROPIN
     Dosage: 2.6 MG (INJECT 2.6 MG SQ 6 X/WK. THIS EQUALS 0.34 MG/KG/WK.)
     Route: 058

REACTIONS (5)
  - Intentional device misuse [Unknown]
  - Device difficult to use [Unknown]
  - Device issue [Unknown]
  - Device leakage [Unknown]
  - Drug dose omission by device [Unknown]
